FAERS Safety Report 6493333-9 (Version None)
Quarter: 2009Q4

REPORT INFORMATION
  Report Type: 
  Country: None (occurrence: None)
  Receive Date: 20091211
  Receipt Date: 20091211
  Transmission Date: 20100525
  Serious: No
  Sender: FDA-Public Use
  Company Number: None

PATIENT
  Age: 42 Year
  Sex: Female

DRUGS (1)
  1. COLD REMEDY ORAL MIST [Suspect]
     Indication: NASOPHARYNGITIS
     Dates: start: 20091114, end: 20091116

REACTIONS (2)
  - AGEUSIA [None]
  - BURNING SENSATION [None]
